FAERS Safety Report 9859238 (Version 2)
Quarter: 2014Q1

REPORT INFORMATION
  Report Type: Spontaneous
  Country: GB (occurrence: None)
  Receive Date: 20140108
  Receipt Date: 20140116
  Transmission Date: 20141002
  Serious: Yes (Other)
  Sender: FDA-Public Use
  Company Number: BTG00100

PATIENT
  Age: 69 Year
  Sex: Male

DRUGS (2)
  1. DIGIFAB [Suspect]
     Indication: TOXICITY TO VARIOUS AGENTS
     Dosage: 2 DF, SINGLE
     Dates: start: 20131224
  2. DIGOXIN (DIGOXIN) [Suspect]
     Indication: PRODUCT USED FOR UNKNOWN INDICATION

REACTIONS (5)
  - Drug ineffective [None]
  - Hyperkalaemia [None]
  - Toxicity to various agents [None]
  - Gastrointestinal disorder [None]
  - Drug effect delayed [None]
